FAERS Safety Report 13760707 (Version 1)
Quarter: 2017Q3

REPORT INFORMATION
  Report Type: Spontaneous
  Country: ES (occurrence: ES)
  Receive Date: 20170717
  Receipt Date: 20170717
  Transmission Date: 20171127
  Serious: Yes (Hospitalization)
  Sender: FDA-Public Use
  Company Number: ES-MYLANLABS-2017M1042030

PATIENT

DRUGS (2)
  1. NORETHISTERONE [Suspect]
     Active Substance: NORETHINDRONE
     Dosage: 10 MG/DAY
     Route: 065
  2. NORETHISTERONE [Suspect]
     Active Substance: NORETHINDRONE
     Indication: MENORRHAGIA
     Dosage: 10 MG/DAY
     Route: 065

REACTIONS (2)
  - Arterial thrombosis [Unknown]
  - Ischaemia [Unknown]
